FAERS Safety Report 5828290-9 (Version None)
Quarter: 2008Q2

REPORT INFORMATION
  Report Type: 
  Country: None (occurrence: None)
  Receive Date: 20080601
  Receipt Date: 20080303
  Transmission Date: 20081010
  Serious: No
  Sender: FDA-Public Use
  Company Number: US200802003200

PATIENT
  Age: 65 Year
  Sex: Male
  Weight: 117.9 kg

DRUGS (2)
  1. BYETTA [Suspect]
     Indication: TYPE 2 DIABETES MELLITUS
     Dosage: 5 UG, 2/D, SUBCUTANEOUS
     Route: 058
     Dates: start: 20080209
  2. GLIPIZIDE [Concomitant]

REACTIONS (11)
  - ABDOMINAL PAIN UPPER [None]
  - BLOOD GLUCOSE DECREASED [None]
  - BLOOD GLUCOSE INCREASED [None]
  - DRUG EFFECT DECREASED [None]
  - DYSPEPSIA [None]
  - EARLY SATIETY [None]
  - FLATULENCE [None]
  - GASTROOESOPHAGEAL REFLUX DISEASE [None]
  - HYPERCHLORHYDRIA [None]
  - NERVOUSNESS [None]
  - WEIGHT INCREASED [None]
